FAERS Safety Report 23936957 (Version 1)
Quarter: 2024Q2

REPORT INFORMATION
  Report Type: Spontaneous
  Country: NL (occurrence: NL)
  Receive Date: 20240604
  Receipt Date: 20240604
  Transmission Date: 20240716
  Serious: Yes (Life-Threatening, Hospitalization)
  Sender: FDA-Public Use
  Company Number: NL-MYLANLABS-2024M1049903

PATIENT
  Age: 8 Year
  Sex: Female
  Weight: 22 kg

DRUGS (6)
  1. BACLOFEN [Interacting]
     Active Substance: BACLOFEN
     Indication: Cerebral palsy
     Dosage: 50 MICROGRAM, QD, PUMP
     Route: 037
     Dates: start: 2010
  2. BACLOFEN [Interacting]
     Active Substance: BACLOFEN
     Dosage: UNK, BACLOFEN DOSE WAS REDUCED
     Route: 037
  3. FENTANYL [Interacting]
     Active Substance: FENTANYL\FENTANYL CITRATE
     Indication: Pain
     Dosage: 50 MICROGRAM
     Route: 042
     Dates: start: 2010, end: 2010
  4. FENTANYL [Interacting]
     Active Substance: FENTANYL\FENTANYL CITRATE
     Dosage: 25 MICROGRAM, RECEIVED 2 DOSES
     Route: 042
     Dates: start: 2010, end: 2010
  5. PIRITRAMIDE [Interacting]
     Active Substance: PIRITRAMIDE
     Indication: Pain
     Dosage: 7 MILLIGRAM
     Route: 042
     Dates: start: 2010, end: 2010
  6. VALPROIC ACID [Concomitant]
     Active Substance: VALPROIC ACID
     Indication: Epilepsy
     Dosage: 200 MILLIGRAM, BID
     Route: 065

REACTIONS (3)
  - Overdose [Recovered/Resolved]
  - Drug interaction [Recovered/Resolved]
  - Depressed level of consciousness [Recovered/Resolved]

NARRATIVE: CASE EVENT DATE: 20100101
